FAERS Safety Report 20657389 (Version 1)
Quarter: 2022Q1

REPORT INFORMATION
  Report Type: Spontaneous
  Country: FR (occurrence: FR)
  Receive Date: 20220331
  Receipt Date: 20220331
  Transmission Date: 20220423
  Serious: Yes (Life-Threatening)
  Sender: FDA-Public Use
  Company Number: None

PATIENT
  Age: 81 Year
  Sex: Male

DRUGS (10)
  1. FINASTERIDE [Suspect]
     Active Substance: FINASTERIDE
     Indication: Product used for unknown indication
     Dosage: UNIT DOSE: 5 MG, FREQUENCY TIME 1 DAY
     Route: 048
  2. CHOLECALCIFEROL [Suspect]
     Active Substance: CHOLECALCIFEROL
     Dosage: UNIT DOSE: 100000 IU
     Route: 048
  3. EZETIMIBE [Suspect]
     Active Substance: EZETIMIBE
     Indication: Product used for unknown indication
     Dosage: UNIT DOSE: 10 MG, FREQUENCY TIME : 1 DAY
     Route: 048
  4. ROSUVASTATIN [Suspect]
     Active Substance: ROSUVASTATIN
     Indication: Product used for unknown indication
     Dosage: UNIT DOSE: 10 MG, FREQUENCY TIME: 1 DAY
     Route: 048
  5. BISOPROLOL FUMARATE [Suspect]
     Active Substance: BISOPROLOL FUMARATE
     Indication: Product used for unknown indication
     Dosage: BISOPROLOL (HEMIFUMARATE DE), UNIT DOSE: 2.5 MG, FREQUENCY TIME 1 DAY
     Route: 048
  6. REVLIMID [Suspect]
     Active Substance: LENALIDOMIDE
     Indication: Plasma cell myeloma
     Dosage: UNIT DOSE: 2.5 MG, FREQUENCY TIME 1 DAY
     Route: 048
     Dates: start: 20170530, end: 20190828
  7. FLUINDIONE [Suspect]
     Active Substance: FLUINDIONE
     Indication: Atrial flutter
     Dosage: UNIT DOSE:  40 MG, FREQUENCY TIME 1 DAY
     Route: 048
  8. AVOCADO OIL\SOYBEAN OIL [Suspect]
     Active Substance: AVOCADO OIL\SOYBEAN OIL
     Indication: Product used for unknown indication
     Dosage: UNIT DOSE: 300 MG, FREQUENCY TIME  1 DAY
     Route: 048
  9. NICARDIPINE HYDROCHLORIDE [Suspect]
     Active Substance: NICARDIPINE HYDROCHLORIDE
     Indication: Product used for unknown indication
     Dosage: NICARDIPINE (CHLORHYDRATE DE), UNIT DOSE: 50 MG, FREQUENCY TIME 1 DAY
     Route: 048
  10. DEXAMETHASONE ACETATE [Suspect]
     Active Substance: DEXAMETHASONE ACETATE
     Indication: Plasma cell myeloma
     Dosage: UNIT DOSE:  20 MG, FREQUENCY TIME : 1 WEEK
     Route: 048
     Dates: start: 20170530, end: 20190828

REACTIONS (1)
  - Acute myeloid leukaemia [Not Recovered/Not Resolved]

NARRATIVE: CASE EVENT DATE: 20220201
